FAERS Safety Report 11272217 (Version 2)
Quarter: 2015Q3

REPORT INFORMATION
  Report Type: Spontaneous
  Country: US (occurrence: None)
  Receive Date: 20150713
  Receipt Date: 20150713
  Transmission Date: 20151125
  Serious: Yes (Other)
  Sender: FDA-Public Use
  Company Number: None

PATIENT
  Age: 73 Year
  Sex: Male
  Weight: 113.4 kg

DRUGS (1)
  1. AMIODARONE [Suspect]
     Active Substance: AMIODARONE
     Indication: ARRHYTHMIA
     Route: 048
     Dates: start: 20150407, end: 20150710

REACTIONS (5)
  - Arthralgia [None]
  - Nerve injury [None]
  - Hypoaesthesia [None]
  - Neuropathy peripheral [None]
  - Musculoskeletal disorder [None]
